FAERS Safety Report 6182879-9 (Version None)
Quarter: 2009Q2

REPORT INFORMATION
  Report Type: 
  Country: None (occurrence: None)
  Receive Date: 20090507
  Receipt Date: 20090430
  Transmission Date: 20091009
  Serious: Yes (Hospitalization)
  Sender: FDA-Public Use
  Company Number: JP-BRISTOL-MYERS SQUIBB COMPANY-14613566

PATIENT
  Age: 61 Year
  Sex: Female
  Weight: 46 kg

DRUGS (10)
  1. ERBITUX [Suspect]
     Indication: COLON CANCER
     Dosage: ALSO GIVEN 250MG/M2 FROM 14DEC2008-ONG;RECENT INF:21JAN2009.
     Route: 042
     Dates: start: 20081209, end: 20081209
  2. IRINOTECAN HCL [Suspect]
     Indication: COLON CANCER
     Dosage: RECENT INF:21JAN2009.
     Route: 042
     Dates: start: 20081209, end: 20081209
  3. CHLOR-TRIMETON [Concomitant]
     Indication: PREMEDICATION
     Route: 042
     Dates: start: 20081209
  4. DEXART [Concomitant]
     Indication: PREMEDICATION
     Route: 042
     Dates: start: 20081209
  5. KYTRIL [Concomitant]
     Indication: ANTIEMETIC SUPPORTIVE CARE
     Dosage: FORM:TAB
     Route: 048
  6. GASTER [Concomitant]
     Route: 042
     Dates: start: 20081209
  7. PRIMPERAN [Concomitant]
     Dosage: FORM:TAB
     Route: 048
     Dates: start: 20090111
  8. ALDACTONE [Concomitant]
     Dosage: FORM:TAB
     Route: 048
  9. LOPEMIN [Concomitant]
     Indication: DIARRHOEA
     Dosage: FORM:TAB
     Route: 048
  10. GRANISETRON HCL [Concomitant]
     Route: 042
     Dates: start: 20081209

REACTIONS (1)
  - EATING DISORDER [None]
